FAERS Safety Report 21884517 (Version 2)
Quarter: 2023Q1

REPORT INFORMATION
  Report Type: Spontaneous
  Country: US (occurrence: US)
  Receive Date: 20230119
  Receipt Date: 20230120
  Transmission Date: 20230418
  Serious: Yes (Death, Other)
  Sender: FDA-Public Use
  Company Number: US-PFIZER INC-PV202300009598

PATIENT
  Age: 13 Year
  Sex: Male

DRUGS (11)
  1. METHOTREXATE SODIUM [Suspect]
     Active Substance: METHOTREXATE SODIUM
     Dosage: (86-147.5 MG TOTAL DOSE), INTRAVENTRICULAR, FIVE DOSES
     Dates: start: 196910
  2. METHOTREXATE SODIUM [Suspect]
     Active Substance: METHOTREXATE SODIUM
     Dosage: INSTILLED INTO THE VENTRICLE TWICE
     Dates: start: 196912
  3. METHOTREXATE SODIUM [Suspect]
     Active Substance: METHOTREXATE SODIUM
     Dosage: INSTILLED INTO THE VENTRICLE TWICE
     Dates: start: 197002
  4. METHOTREXATE SODIUM [Suspect]
     Active Substance: METHOTREXATE SODIUM
     Dosage: INSTILLED INTO THE VENTRICLE TWICE
     Dates: start: 197003
  5. METHOTREXATE SODIUM [Suspect]
     Active Substance: METHOTREXATE SODIUM
     Dosage: INSTILLED INTO THE VENTRICLE ONCE
     Dates: start: 197004
  6. METHOTREXATE SODIUM [Suspect]
     Active Substance: METHOTREXATE SODIUM
     Dosage: FOUR INTRAVENTRICULAR DOSES
     Dates: start: 197010
  7. CARMUSTINE [Suspect]
     Active Substance: CARMUSTINE
     Dosage: TWO INTRAVENOUS DOSES
     Route: 042
     Dates: start: 196910
  8. CARMUSTINE [Suspect]
     Active Substance: CARMUSTINE
     Dosage: UNK
     Route: 042
     Dates: start: 196912
  9. CARMUSTINE [Suspect]
     Active Substance: CARMUSTINE
     Dosage: UNK
     Route: 042
     Dates: start: 197001
  10. CARMUSTINE [Suspect]
     Active Substance: CARMUSTINE
     Dosage: UNK
     Route: 042
     Dates: start: 197003
  11. CARMUSTINE [Suspect]
     Active Substance: CARMUSTINE
     Dosage: TWO DOSES
     Route: 042
     Dates: start: 197010

REACTIONS (2)
  - Encephalopathy [Fatal]
  - Brain oedema [Fatal]

NARRATIVE: CASE EVENT DATE: 19700101
